FAERS Safety Report 22304118 (Version 1)
Quarter: 2023Q2

REPORT INFORMATION
  Report Type: Spontaneous
  Country: US (occurrence: US)
  Receive Date: 20230510
  Receipt Date: 20230510
  Transmission Date: 20230722
  Serious: Yes (Death, Hospitalization, Other)
  Sender: FDA-Public Use
  Company Number: US-AMGEN-USASP2023075825

PATIENT
  Sex: Female

DRUGS (7)
  1. FILGRASTIM [Suspect]
     Active Substance: FILGRASTIM
     Indication: Neutropenia
     Dosage: UNK
     Route: 065
  2. CYTARABINE [Concomitant]
     Active Substance: CYTARABINE
  3. DAUNORUBICIN [Concomitant]
     Active Substance: DAUNORUBICIN
  4. MIDOSTAURIN [Concomitant]
     Active Substance: MIDOSTAURIN
  5. IDARUBICIN [Concomitant]
     Active Substance: IDARUBICIN
  6. FLUDARABINE PHOSPHATE [Concomitant]
     Active Substance: FLUDARABINE PHOSPHATE
  7. GILTERITINIB [Concomitant]
     Active Substance: GILTERITINIB

REACTIONS (7)
  - Death [Fatal]
  - Disseminated intravascular coagulation [Not Recovered/Not Resolved]
  - Intracranial haematoma [Unknown]
  - Acute myeloid leukaemia refractory [Unknown]
  - Stress cardiomyopathy [Unknown]
  - Acute myocardial infarction [Unknown]
  - Fall [Unknown]
